FAERS Safety Report 10013453 (Version 2)
Quarter: 2014Q1

REPORT INFORMATION
  Report Type: Spontaneous
  Country: DE (occurrence: DE)
  Receive Date: 20140314
  Receipt Date: 20140321
  Transmission Date: 20141002
  Serious: Yes (Death, Other)
  Sender: FDA-Public Use
  Company Number: DE-B.I. PHARMACEUTICALS,INC./RIDGEFIELD-2014-BI-10900DE

PATIENT
  Age: 82 Year
  Sex: Female
  Weight: 58 kg

DRUGS (9)
  1. PRADAXA [Suspect]
     Indication: PROPHYLAXIS
     Dosage: 220 MG
     Route: 065
     Dates: end: 20140304
  2. PRADAXA [Suspect]
     Dosage: 150 MG
     Route: 048
     Dates: start: 20140226, end: 20140303
  3. NOVALGIN [Concomitant]
     Dosage: 120 ANZ
     Route: 065
  4. METOPROLOL [Concomitant]
     Dosage: DAILY DOSE: 47.5 UNIT NOT REPORTED
     Route: 048
     Dates: start: 20140226, end: 20140303
  5. DELIX 2.5 [Concomitant]
     Dosage: DAILY DOSE: 2.5 UNITS NOT REPORTED
     Route: 048
     Dates: start: 20140226, end: 20140303
  6. SIMVASTATIN [Concomitant]
     Dosage: 20 MG
     Route: 048
     Dates: start: 20140226, end: 20140303
  7. IBU 800 [Concomitant]
     Dosage: 2 ANZ
     Route: 048
     Dates: start: 20140226, end: 20140303
  8. PANTOZOL [Concomitant]
     Dosage: DAILY DOSE: 20 UNIT NOT REPORTED
     Route: 048
     Dates: start: 20140226, end: 20140303
  9. TILIDIN 50 [Concomitant]
     Dosage: 2 ANZ
     Route: 065

REACTIONS (7)
  - Disseminated intravascular coagulation [Fatal]
  - Haemorrhage [Fatal]
  - Post procedural haemorrhage [Fatal]
  - Post procedural haemorrhage [Fatal]
  - Intestinal ischaemia [Fatal]
  - Colon gangrene [Unknown]
  - Acute abdomen [Unknown]
